FAERS Safety Report 6490752-1 (Version None)
Quarter: 2009Q4

REPORT INFORMATION
  Report Type: 
  Country: None (occurrence: None)
  Receive Date: 20091208
  Receipt Date: 20091120
  Transmission Date: 20100525
  Serious: Yes (Other)
  Sender: FDA-Public Use
  Company Number: JPI-P-005451

PATIENT
  Age: 36 Year
  Sex: Female
  Weight: 119.296 kg

DRUGS (31)
  1. XYREM [Suspect]
     Indication: NARCOLEPSY
     Dosage: SEE IMAGE
     Route: 048
     Dates: start: 20080101, end: 20080101
  2. XYREM [Suspect]
     Indication: NARCOLEPSY
     Dosage: SEE IMAGE
     Route: 048
     Dates: start: 20080101, end: 20090201
  3. XYREM [Suspect]
     Indication: NARCOLEPSY
     Dosage: SEE IMAGE
     Route: 048
     Dates: start: 20060101
  4. XYREM [Suspect]
     Indication: NARCOLEPSY
     Dosage: SEE IMAGE
     Route: 048
     Dates: start: 20090101
  5. XYREM [Suspect]
     Indication: NARCOLEPSY
     Dosage: SEE IMAGE
     Route: 048
     Dates: start: 20090201
  6. DEXADRINE [Suspect]
     Indication: NARCOLEPSY
  7. DEXTROAMPHETAMINE [Concomitant]
  8. TRAMADOL HCL [Concomitant]
  9. FENTANYL-100 [Concomitant]
  10. HYDROMORPHONE HYDROCHLORIDE [Concomitant]
  11. RISPERIDONE [Concomitant]
  12. MONTELUKAST SODIUM [Concomitant]
  13. ALBUTEROL [Concomitant]
  14. PRAMIPEXOLE DIHYDROCHLORIDE [Concomitant]
  15. PAROXETINE HYDROCHLORIDE [Concomitant]
  16. METFORMIN [Concomitant]
  17. VITAMIN D [Concomitant]
  18. LUBIPROSTONE [Concomitant]
  19. PANTOPRAZOLE [Concomitant]
  20. KETOCONAZOLE [Concomitant]
  21. PIMECROLIMUS [Concomitant]
  22. ACETAMINOPHEN [Concomitant]
  23. IODINE [Concomitant]
  24. METAXALONE [Concomitant]
  25. CETIRIZINE [Concomitant]
  26. EPINEPHRINE [Concomitant]
  27. LEVALBUTEROL HCL [Concomitant]
  28. FLUTICASONE PROPIONATE [Concomitant]
  29. CLONAZEPAM [Concomitant]
  30. OXACARBAZINE [Concomitant]
  31. PRAZOSIN HYDROCHLORIDE [Concomitant]

REACTIONS (30)
  - ACTIVATED PARTIAL THROMBOPLASTIN TIME [None]
  - ACTIVATED PARTIAL THROMBOPLASTIN TIME SHORTENED [None]
  - AUTONOMIC NEUROPATHY [None]
  - BLOOD CHLORIDE DECREASED [None]
  - CARPAL TUNNEL DECOMPRESSION [None]
  - CHEST PAIN [None]
  - CONDITION AGGRAVATED [None]
  - DRUG INEFFECTIVE [None]
  - GLOMERULAR FILTRATION RATE DECREASED [None]
  - HOT FLUSH [None]
  - HYPERHIDROSIS [None]
  - HYPERTENSION [None]
  - HYPOKALAEMIA [None]
  - HYPOTENSION [None]
  - INITIAL INSOMNIA [None]
  - INTERNATIONAL NORMALISED RATIO INCREASED [None]
  - MIDDLE INSOMNIA [None]
  - MIGRAINE [None]
  - MUSCLE SPASMS [None]
  - NAUSEA [None]
  - NIGHT SWEATS [None]
  - PAIN IN JAW [None]
  - PROTHROMBIN TIME PROLONGED [None]
  - PSORIATIC ARTHROPATHY [None]
  - RHEUMATOID ARTHRITIS [None]
  - SINUS TACHYCARDIA [None]
  - SLEEP APNOEA SYNDROME [None]
  - SYSTEMIC LUPUS ERYTHEMATOSUS [None]
  - URINARY HESITATION [None]
  - VITAMIN D DEFICIENCY [None]
